FAERS Safety Report 17849051 (Version 3)
Quarter: 2021Q2

REPORT INFORMATION
  Report Type: Report from Study
  Country: US (occurrence: US)
  Receive Date: 20200602
  Receipt Date: 20210520
  Transmission Date: 20210717
  Serious: Yes (Hospitalization, Other)
  Sender: FDA-Public Use
  Company Number: US-TAKEDA-2020TUS014671

PATIENT
  Age: 50 Year
  Sex: Male

DRUGS (2)
  1. VEDOLIZUMAB [Suspect]
     Active Substance: VEDOLIZUMAB
     Dosage: 300 MILLIGRAM, Q6WEEKS
     Route: 042
  2. VEDOLIZUMAB [Suspect]
     Active Substance: VEDOLIZUMAB
     Indication: COLITIS ULCERATIVE
     Dosage: 300 MILLIGRAM
     Route: 042
     Dates: start: 2019

REACTIONS (6)
  - Colon operation [Unknown]
  - Colitis [Unknown]
  - Gastrointestinal polyp [Unknown]
  - Off label use [Unknown]
  - Full blood count decreased [Unknown]
  - Defaecation urgency [Unknown]

NARRATIVE: CASE EVENT DATE: 20200428
